FAERS Safety Report 22077839 (Version 1)
Quarter: 2023Q1

REPORT INFORMATION
  Report Type: Spontaneous
  Country: US (occurrence: US)
  Receive Date: 20230309
  Receipt Date: 20230309
  Transmission Date: 20230417
  Serious: No
  Sender: FDA-Public Use
  Company Number: US-BAYER-2023A017099

PATIENT
  Age: 81 Year
  Sex: Female
  Weight: 197 kg

DRUGS (4)
  1. MIRALAX [Suspect]
     Active Substance: POLYETHYLENE GLYCOL 3350
  2. VYNDAMAX [Suspect]
     Active Substance: TAFAMIDIS
     Indication: Amyloidosis
     Dosage: 61MG 1 CAPSULE A DAY
     Dates: start: 202211
  3. DULCOLAX-S [Concomitant]
  4. LUBIPROSTONE [Concomitant]
     Active Substance: LUBIPROSTONE
     Indication: Constipation
     Dosage: 8 MG

REACTIONS (2)
  - Drug ineffective [None]
  - Constipation [Not Recovered/Not Resolved]
